FAERS Safety Report 7226548-2 (Version None)
Quarter: 2011Q1

REPORT INFORMATION
  Report Type: 
  Country: None (occurrence: None)
  Receive Date: 20110114
  Receipt Date: 20110107
  Transmission Date: 20110831
  Serious: No
  Sender: FDA-Public Use
  Company Number: PL-ASTELLAS-2010EU006867

PATIENT

DRUGS (1)
  1. TACROLIMUS [Suspect]
     Dosage: UNK
     Route: 065

REACTIONS (1)
  - ADENOIDECTOMY [None]
